FAERS Safety Report 6945032-4 (Version None)
Quarter: 2010Q3

REPORT INFORMATION
  Report Type: 
  Country: None (occurrence: None)
  Receive Date: 20100827
  Receipt Date: 20100816
  Transmission Date: 20110219
  Serious: Yes (Hospitalization, Other)
  Sender: FDA-Public Use
  Company Number: PHFR2010GB01479

PATIENT
  Sex: Male

DRUGS (2)
  1. CLOZARIL [Suspect]
     Indication: SCHIZOPHRENIA
     Dosage: UNK
     Route: 048
     Dates: start: 19960826, end: 20100726
  2. AMISULPRIDE [Suspect]
     Indication: ABNORMAL BEHAVIOUR

REACTIONS (8)
  - HALLUCINATION, AUDITORY [None]
  - LOWER RESPIRATORY TRACT INFECTION [None]
  - NEUTROPENIA [None]
  - NEUTROPHIL COUNT DECREASED [None]
  - PSYCHOTIC DISORDER [None]
  - SCHIZOPHRENIA [None]
  - WATER INTOXICATION [None]
  - WHITE BLOOD CELL COUNT DECREASED [None]
